FAERS Safety Report 9559874 (Version 1)
Quarter: 2013Q3

REPORT INFORMATION
  Report Type: Spontaneous
  Country: US (occurrence: None)
  Receive Date: 20130924
  Receipt Date: 20130924
  Transmission Date: 20140515
  Serious: Yes (Hospitalization)
  Sender: FDA-Public Use
  Company Number: 2013-002981

PATIENT
  Age: 68 Year
  Sex: Female

DRUGS (4)
  1. ESTRACE CREAM, 0.01% [Suspect]
     Indication: BLADDER PROLAPSE
     Route: 067
     Dates: start: 20121220, end: 201304
  2. MACROBID [Suspect]
     Indication: CYSTITIS
     Route: 048
     Dates: start: 201305, end: 201305
  3. PRILOSEC  /00661201/ (OMEPRAZOLE) [Concomitant]
  4. ANTIHYPERTENSIVES [Concomitant]

REACTIONS (10)
  - Sepsis [None]
  - Chills [None]
  - Pyrexia [None]
  - Tremor [None]
  - Feeling cold [None]
  - Fungal infection [None]
  - Vulvovaginal mycotic infection [None]
  - Cystitis [None]
  - Drug ineffective [None]
  - Wrong technique in drug usage process [None]
